FAERS Safety Report 9945843 (Version 1)
Quarter: 2014Q1

REPORT INFORMATION
  Report Type: Spontaneous
  Country: US (occurrence: US)
  Receive Date: 20140303
  Receipt Date: 20140303
  Transmission Date: 20141002
  Serious: No
  Sender: FDA-Public Use
  Company Number: US-AMGEN-USASP2013076484

PATIENT
  Age: 58 Year
  Sex: Male

DRUGS (12)
  1. ENBREL [Suspect]
     Indication: PRODUCT USED FOR UNKNOWN INDICATION
     Dosage: 50 MG, WEEKLY
     Route: 058
  2. CYMBALTA [Concomitant]
     Dosage: 20 MG, UNK
  3. WARFARIN [Concomitant]
     Dosage: 1 MG, UNK
  4. CLONAZEPAM [Concomitant]
     Dosage: 0.5 MG, UNK
  5. BACLOFEN [Concomitant]
     Dosage: 10 MG, UNK
  6. GABAPENTIN [Concomitant]
     Dosage: 100 MG, UNK
  7. LAMOTRIGINE [Concomitant]
     Dosage: 25 MG, UNK
  8. DEXILANT [Concomitant]
     Dosage: 30 MG DR, UNK
  9. METHOTREXATE [Concomitant]
     Dosage: 2.5 MG, UNK
  10. FOLIC ACID [Concomitant]
     Dosage: 5 MG, UNK
  11. RANITIDINE [Concomitant]
     Dosage: 150 MG, UNK
  12. IMIPRAMINE HCL [Concomitant]
     Dosage: 10 MG, UNK

REACTIONS (2)
  - Essential tremor [Unknown]
  - Gait disturbance [Unknown]
